FAERS Safety Report 25835554 (Version 1)
Quarter: 2025Q3

REPORT INFORMATION
  Report Type: Spontaneous
  Country: US (occurrence: US)
  Receive Date: 20250923
  Receipt Date: 20250923
  Transmission Date: 20251021
  Serious: Yes (Death, Hospitalization)
  Sender: IRON THERAPEUTICS
  Company Number: US-SHIELD THERAPEUTICS-US-STX-25-00441

PATIENT

DRUGS (2)
  1. IRON [Suspect]
     Active Substance: IRON
     Indication: Product used for unknown indication
     Route: 065
  2. ELIGARD [Concomitant]
     Active Substance: LEUPROLIDE ACETATE
     Indication: Product used for unknown indication
     Route: 065
     Dates: start: 20250731

REACTIONS (4)
  - Death [Fatal]
  - Urticaria [Unknown]
  - Lymphadenopathy [Unknown]
  - Hospice care [Unknown]

NARRATIVE: CASE EVENT DATE: 20250818
